FAERS Safety Report 21260461 (Version 1)
Quarter: 2022Q3

REPORT INFORMATION
  Report Type: Spontaneous
  Country: FR (occurrence: None)
  Receive Date: 20220826
  Receipt Date: 20220826
  Transmission Date: 20221027
  Serious: Yes (Death, Life-Threatening, Other)
  Sender: FDA-Public Use
  Company Number: 2022A298039

PATIENT
  Age: 942 Month
  Sex: Female

DRUGS (3)
  1. TAGRISSO [Suspect]
     Active Substance: OSIMERTINIB
     Indication: Adenocarcinoma metastatic
     Route: 048
     Dates: start: 202103
  2. TAFINLAR [Suspect]
     Active Substance: DABRAFENIB MESYLATE
     Indication: Adenocarcinoma metastatic
     Route: 065
     Dates: start: 20220803
  3. MEKINIST [Suspect]
     Active Substance: TRAMETINIB DIMETHYL SULFOXIDE
     Indication: Adenocarcinoma metastatic
     Route: 065
     Dates: start: 20220803

REACTIONS (3)
  - Diarrhoea [Fatal]
  - Gastrointestinal toxicity [Unknown]
  - Malignant neoplasm progression [Unknown]

NARRATIVE: CASE EVENT DATE: 20220701
